FAERS Safety Report 6441509-9 (Version None)
Quarter: 2009Q4

REPORT INFORMATION
  Report Type: 
  Country: None (occurrence: None)
  Receive Date: 20091116
  Receipt Date: 20091109
  Transmission Date: 20100525
  Serious: Yes (Hospitalization)
  Sender: FDA-Public Use
  Company Number: B0603221A

PATIENT
  Age: 72 Year
  Sex: Male

DRUGS (1)
  1. ARIXTRA [Suspect]
     Indication: THROMBOSIS PROPHYLAXIS
     Dosage: 2.5MG PER DAY
     Route: 058
     Dates: start: 20091017, end: 20091020

REACTIONS (4)
  - ABDOMINAL PAIN [None]
  - FAILURE TO ANASTOMOSE [None]
  - HAEMATOMA [None]
  - SUTURE RUPTURE [None]
